FAERS Safety Report 6376113-4 (Version None)
Quarter: 2009Q3

REPORT INFORMATION
  Report Type: 
  Country: None (occurrence: None)
  Receive Date: 20090918
  Receipt Date: 20090908
  Transmission Date: 20100115
  Serious: Yes (Death, Hospitalization)
  Sender: FDA-Public Use
  Company Number: POMP-1000647

PATIENT
  Age: 32 Year
  Sex: Female
  Weight: 157 kg

DRUGS (4)
  1. MYOZYME [Suspect]
     Indication: GLYCOGEN STORAGE DISEASE TYPE II
     Dosage: SEE IMAGE
     Route: 042
     Dates: start: 20080520, end: 20080520
  2. MYOZYME [Suspect]
     Indication: GLYCOGEN STORAGE DISEASE TYPE II
     Dosage: SEE IMAGE
     Route: 042
     Dates: start: 20080603, end: 20080617
  3. MYOZYME [Suspect]
     Indication: GLYCOGEN STORAGE DISEASE TYPE II
     Dosage: SEE IMAGE
     Route: 042
     Dates: start: 20080701, end: 20080701
  4. MYOZYME [Suspect]
     Indication: GLYCOGEN STORAGE DISEASE TYPE II
     Dosage: SEE IMAGE
     Route: 042
     Dates: start: 20080715, end: 20090520

REACTIONS (2)
  - INFECTION [None]
  - RESPIRATORY FAILURE [None]
